FAERS Safety Report 24208441 (Version 1)
Quarter: 2024Q3

REPORT INFORMATION
  Report Type: Report from Study
  Country: US (occurrence: US)
  Receive Date: 20240814
  Receipt Date: 20240814
  Transmission Date: 20241017
  Serious: Yes (Hospitalization)
  Sender: ROCHE
  Company Number: US-ROCHE-10000053623

PATIENT
  Age: 56 Year
  Sex: Male

DRUGS (1)
  1. OCREVUS [Suspect]
     Active Substance: OCRELIZUMAB
     Indication: Relapsing multiple sclerosis
     Dosage: DATE OF MOST RECENT INFUSION: 20/JUL/2022, 25/JAN/2023
     Route: 042
     Dates: start: 20181213

REACTIONS (3)
  - Atrioventricular block [Unknown]
  - COVID-19 [Recovered/Resolved]
  - Chronic obstructive pulmonary disease [Not Recovered/Not Resolved]
